FAERS Safety Report 19476172 (Version 1)
Quarter: 2021Q2

REPORT INFORMATION
  Report Type: Spontaneous
  Country: US (occurrence: US)
  Receive Date: 20210630
  Receipt Date: 20210630
  Transmission Date: 20210717
  Serious: Yes (Other)
  Sender: FDA-Public Use
  Company Number: US-GLAXOSMITHKLINE-US2021GSK140640

PATIENT
  Sex: Male

DRUGS (4)
  1. RANITIDINE CAPSULE [Suspect]
     Active Substance: RANITIDINE
     Indication: STRESS
     Dosage: UNK, QD
     Route: 065
     Dates: start: 199001, end: 200012
  2. ZANTAC [Suspect]
     Active Substance: RANITIDINE HYDROCHLORIDE
     Indication: STRESS
     Dosage: UNK UNK, QD
     Route: 065
     Dates: start: 199001, end: 200012
  3. ZANTAC [Suspect]
     Active Substance: RANITIDINE HYDROCHLORIDE
     Indication: STRESS
     Dosage: UNK UNK, QD
     Route: 065
     Dates: start: 199001, end: 200012
  4. RANITIDINE. [Suspect]
     Active Substance: RANITIDINE
     Indication: STRESS
     Dosage: UNK, QD
     Route: 065
     Dates: start: 199001, end: 200012

REACTIONS (1)
  - Pancreatic carcinoma [Unknown]
